FAERS Safety Report 5215082-7 (Version None)
Quarter: 2007Q1

REPORT INFORMATION
  Report Type: 
  Country: None (occurrence: None)
  Receive Date: 20061107
  Receipt Date: 20060906
  Transmission Date: 20070707
  Serious: No
  Sender: FDA-Public Use
  Company Number: 200613029BWH

PATIENT
  Age: 73 Year
  Sex: Male
  Weight: 88.905 kg

DRUGS (8)
  1. LEVITRA [Suspect]
     Indication: DEPRESSION
     Dosage: SEE IMAGE
     Route: 048
     Dates: start: 20060411, end: 20060423
  2. LEVITRA [Suspect]
     Indication: ERECTILE DYSFUNCTION
     Dosage: SEE IMAGE
     Route: 048
     Dates: start: 20060411, end: 20060423
  3. LEVITRA [Suspect]
     Indication: DEPRESSION
     Dosage: SEE IMAGE
     Route: 048
     Dates: start: 20060501, end: 20060513
  4. LEVITRA [Suspect]
     Indication: ERECTILE DYSFUNCTION
     Dosage: SEE IMAGE
     Route: 048
     Dates: start: 20060501, end: 20060513
  5. LEVITRA [Suspect]
     Indication: DEPRESSION
     Dosage: SEE IMAGE
     Route: 048
     Dates: start: 20060410
  6. LEVITRA [Suspect]
     Indication: ERECTILE DYSFUNCTION
     Dosage: SEE IMAGE
     Route: 048
     Dates: start: 20060410
  7. ANAFRANIL [Concomitant]
  8. SYMBYAX [Concomitant]

REACTIONS (3)
  - COGNITIVE DISORDER [None]
  - DEPRESSION [None]
  - ERECTILE DYSFUNCTION [None]
